FAERS Safety Report 24798007 (Version 2)
Quarter: 2025Q1

REPORT INFORMATION
  Report Type: Spontaneous
  Country: US (occurrence: US)
  Receive Date: 20250102
  Receipt Date: 20250128
  Transmission Date: 20250408
  Serious: No
  Sender: Kenvue
  Company Number: US-KENVUE-20241201109

PATIENT
  Sex: Female

DRUGS (1)
  1. TYLENOL 8 HR ARTHRITIS PAIN [Suspect]
     Active Substance: ACETAMINOPHEN
     Indication: Arthralgia
     Route: 065
     Dates: start: 2024

REACTIONS (3)
  - Inappropriate schedule of product administration [Unknown]
  - Product commingling [Unknown]
  - Product label issue [Unknown]

NARRATIVE: CASE EVENT DATE: 20240101
